FAERS Safety Report 8227206-8 (Version None)
Quarter: 2012Q1

REPORT INFORMATION
  Report Type: 
  Country: None (occurrence: None)
  Receive Date: 20120322
  Receipt Date: 20120314
  Transmission Date: 20120608
  Serious: Yes (Hospitalization)
  Sender: FDA-Public Use
  Company Number: JP-JNJFOC-20120205844

PATIENT
  Age: 59 Year
  Sex: Female

DRUGS (5)
  1. ZOLOFT [Suspect]
     Indication: DEPRESSION
     Route: 048
     Dates: start: 20111001, end: 20111101
  2. RISPERDAL [Suspect]
     Indication: DELUSION
     Dosage: 0.5-2 MG/DAY
     Route: 048
     Dates: start: 20111001, end: 20120201
  3. LEXAPRO [Concomitant]
     Indication: DEPRESSION
     Route: 048
     Dates: start: 20111101, end: 20120201
  4. ZOLOFT [Suspect]
     Indication: DELUSION
     Route: 048
     Dates: start: 20111001, end: 20111101
  5. RISPERDAL [Suspect]
     Indication: DEPRESSION
     Dosage: 0.5-2 MG/DAY
     Route: 048
     Dates: start: 20111001, end: 20120201

REACTIONS (1)
  - HEPATIC FUNCTION ABNORMAL [None]
